FAERS Safety Report 10041935 (Version 2)
Quarter: 2014Q1

REPORT INFORMATION
  Report Type: Spontaneous
  Country: JP (occurrence: JP)
  Receive Date: 20140327
  Receipt Date: 20140327
  Transmission Date: 20141002
  Serious: Yes (Other)
  Sender: FDA-Public Use
  Company Number: JP-ROCHE-1359938

PATIENT
  Age: 77 Year
  Sex: Female
  Weight: 39 kg

DRUGS (2)
  1. BONVIVA [Suspect]
     Indication: OSTEOPOROSIS
     Route: 042
     Dates: start: 20140217, end: 20140217
  2. EDIROL [Concomitant]
     Indication: OSTEOPOROSIS
     Route: 048
     Dates: start: 20121116

REACTIONS (2)
  - Urticaria [Recovered/Resolved]
  - Drug eruption [Recovered/Resolved]
